FAERS Safety Report 4308558-8 (Version None)
Quarter: 2004Q1

REPORT INFORMATION
  Report Type: 
  Country: None (occurrence: None)
  Receive Date: 20040226
  Receipt Date: 20030919
  Transmission Date: 20041129
  Serious: No
  Sender: FDA-Public Use
  Company Number: 2003175271US

PATIENT
  Age: 64 Year
  Sex: Male

DRUGS (2)
  1. CELEBREX [Suspect]
     Indication: PAIN
     Dosage: 200 MG, BID, ORAL
     Route: 048
     Dates: start: 20030821, end: 20030829
  2. ALBUTEROL [Concomitant]

REACTIONS (1)
  - RASH MACULO-PAPULAR [None]
